FAERS Safety Report 15964773 (Version 1)
Quarter: 2019Q1

REPORT INFORMATION
  Report Type: Spontaneous
  Country: US (occurrence: US)
  Receive Date: 20190124
  Receipt Date: 20190124
  Transmission Date: 20190418
  Serious: Yes (Life-Threatening, Other)
  Sender: FDA-Public Use
  Company Number: None

PATIENT
  Age: 76 Year
  Sex: Female

DRUGS (3)
  1. HYDROXYZINE [Suspect]
     Active Substance: HYDROXYZINE HYDROCHLORIDE
     Indication: PRURITUS
     Dosage: ?          QUANTITY:50 MG MILLIGRAM(S);OTHER FREQUENCY:1 TABLETS 3-4X A D;?
     Route: 048
     Dates: start: 20190108, end: 20190109
  2. VITAMIN D [Concomitant]
     Active Substance: CHOLECALCIFEROL
  3. CRESTOR [Concomitant]
     Active Substance: ROSUVASTATIN CALCIUM

REACTIONS (5)
  - Eye swelling [None]
  - Swelling face [None]
  - Swelling [None]
  - Throat tightness [None]
  - Rash erythematous [None]

NARRATIVE: CASE EVENT DATE: 20190108
